FAERS Safety Report 6347475-9 (Version None)
Quarter: 2009Q3

REPORT INFORMATION
  Report Type: 
  Country: None (occurrence: None)
  Receive Date: 20090910
  Receipt Date: 20090902
  Transmission Date: 20100115
  Serious: Yes (Other)
  Sender: FDA-Public Use
  Company Number: US-ELI_LILLY_AND_COMPANY-US200909000585

PATIENT
  Sex: Female

DRUGS (14)
  1. HUMALOG [Suspect]
     Dosage: UNK, UNK
     Dates: start: 20080101
  2. HUMULIN N [Suspect]
     Dosage: UNK, UNK
     Dates: start: 19970101, end: 20050101
  3. HUMULIN N [Suspect]
     Dosage: UNK, UNK
     Dates: start: 20050101, end: 20080101
  4. HUMULIN R [Suspect]
     Dosage: UNK, UNK
     Dates: start: 19970101, end: 20050101
  5. ORAL ANTIDIABETICS [Concomitant]
     Dates: start: 19970101
  6. LANTUS [Concomitant]
     Dosage: UNK, UNK
     Dates: start: 20050101, end: 20080101
  7. HYDROCHLOROTHIAZIDE [Concomitant]
  8. ENALAPRIL MALEATE [Concomitant]
  9. PRAVASTATIN [Concomitant]
  10. TOPROL-XL [Concomitant]
  11. VITAMINS [Concomitant]
  12. ASPIRIN [Concomitant]
     Dosage: 81 MG, UNK
  13. ADVAIR HFA [Concomitant]
  14. PROVENTOL [Concomitant]
     Indication: ASTHMA

REACTIONS (6)
  - ASTHMA [None]
  - BLINDNESS [None]
  - BLINDNESS UNILATERAL [None]
  - DIABETIC RETINOPATHY [None]
  - SINUSITIS [None]
  - VISUAL IMPAIRMENT [None]
